FAERS Safety Report 21759685 (Version 1)
Quarter: 2022Q4

REPORT INFORMATION
  Report Type: Report from Study
  Country: US (occurrence: US)
  Receive Date: 20221221
  Receipt Date: 20221221
  Transmission Date: 20230112
  Serious: No
  Sender: FDA-Public Use
  Company Number: US-ABBVIE-4243090

PATIENT
  Age: 52 Year
  Sex: Male

DRUGS (1)
  1. RINVOQ [Suspect]
     Active Substance: UPADACITINIB
     Indication: Colitis ulcerative
     Route: 048
     Dates: start: 20221111

REACTIONS (9)
  - Sleep disorder [Unknown]
  - Therapeutic product effect delayed [Unknown]
  - Headache [Unknown]
  - Pain in extremity [Unknown]
  - Eye disorder [Unknown]
  - Pain in extremity [Unknown]
  - Dyspnoea [Unknown]
  - Cough [Unknown]
  - Dry mouth [Unknown]

NARRATIVE: CASE EVENT DATE: 20221126
